FAERS Safety Report 10203036 (Version 1)
Quarter: 2014Q2

REPORT INFORMATION
  Report Type: Spontaneous
  Country: US (occurrence: US)
  Receive Date: 20140529
  Receipt Date: 20140529
  Transmission Date: 20141212
  Serious: Yes (Other)
  Sender: FDA-Public Use
  Company Number: US-MYLANLABS-2014S1011854

PATIENT
  Age: 37 Year
  Sex: Female

DRUGS (3)
  1. LISINOPRIL TABLETS, USP [Suspect]
     Indication: BLOOD PRESSURE INCREASED
     Route: 048
  2. HCTZ [Concomitant]
  3. PERCOCET [Concomitant]

REACTIONS (3)
  - Muscle spasms [Recovered/Resolved]
  - Cough [Not Recovered/Not Resolved]
  - Retching [Not Recovered/Not Resolved]
